FAERS Safety Report 6989442-8 (Version None)
Quarter: 2010Q3

REPORT INFORMATION
  Report Type: 
  Country: None (occurrence: None)
  Receive Date: 20100916
  Receipt Date: 20091207
  Transmission Date: 20110219
  Serious: Yes (Other)
  Sender: FDA-Public Use
  Company Number: US-PFIZER INC-2009307223

PATIENT
  Sex: Female

DRUGS (1)
  1. LYRICA [Suspect]
     Indication: FIBROMYALGIA
     Dosage: UNK
     Route: 048
     Dates: start: 20090101, end: 20090101

REACTIONS (3)
  - BACTERIAL INFECTION [None]
  - DYSPHEMIA [None]
  - OSTEOPOROTIC FRACTURE [None]
